FAERS Safety Report 17375481 (Version 2)
Quarter: 2020Q1

REPORT INFORMATION
  Report Type: Spontaneous
  Country: US (occurrence: US)
  Receive Date: 20200205
  Receipt Date: 20200312
  Transmission Date: 20200409
  Serious: Yes (Other)
  Sender: FDA-Public Use
  Company Number: US-PFIZER INC-2020049924

PATIENT
  Age: 55 Year
  Sex: Female
  Weight: 69.84 kg

DRUGS (4)
  1. SYNTHROID [Suspect]
     Active Substance: LEVOTHYROXINE SODIUM
     Indication: HYPOTHYROIDISM
     Dosage: 25 MG, DAILY
  2. TENORMIN [Suspect]
     Active Substance: ATENOLOL
     Indication: MULTIPLE CHEMICAL SENSITIVITY
     Dosage: 50 MG, DAILY
  3. CLARITONE [Suspect]
     Active Substance: BENZALKONIUM CHLORIDE
     Indication: HYPERSENSITIVITY
     Dosage: 10 MG, UNK (OCCASSIONALLY)
  4. XANAX [Suspect]
     Active Substance: ALPRAZOLAM
     Indication: MULTIPLE CHEMICAL SENSITIVITY
     Dosage: 0.25 MG, 3X/DAY

REACTIONS (3)
  - Off label use [Unknown]
  - Product use in unapproved indication [Unknown]
  - Cataract [Not Recovered/Not Resolved]
